FAERS Safety Report 9797927 (Version 2)
Quarter: 2016Q2

REPORT INFORMATION
  Report Type: Report from Study
  Country: US (occurrence: US)
  Receive Date: 20140106
  Receipt Date: 20160606
  Transmission Date: 20160815
  Serious: Yes (Other)
  Sender: FDA-Public Use
  Company Number: US-ROCHE-1324781

PATIENT
  Age: 75 Year
  Sex: Male

DRUGS (7)
  1. LUCENTIS [Suspect]
     Active Substance: RANIBIZUMAB
     Dosage: LEFT EYE
     Route: 050
  2. TIMOLOL. [Concomitant]
     Active Substance: TIMOLOL
     Dosage: OU QAM
     Route: 047
  3. PHENYLEPHRINE [Concomitant]
     Active Substance: PHENYLEPHRINE\PHENYLEPHRINE HYDROCHLORIDE
     Dosage: OU
     Route: 065
  4. TROPICAMIDE. [Concomitant]
     Active Substance: TROPICAMIDE
     Dosage: OU
     Route: 065
  5. LUCENTIS [Suspect]
     Active Substance: RANIBIZUMAB
     Indication: PATHOLOGIC MYOPIA
     Dosage: RECEIVED RANIBIZUMAB ON 07/JUN/2011, 19/JUL/2011, 30/AUG/2011, 11/OCT/2011, 29/NOV/2011, 10/JAN/2012
     Route: 050
  6. AVASTIN [Suspect]
     Active Substance: BEVACIZUMAB
     Indication: OFF LABEL USE
     Route: 050
  7. LUCENTIS [Suspect]
     Active Substance: RANIBIZUMAB
     Indication: CHOROIDAL NEOVASCULARISATION
     Dosage: Q6 WEEKS
     Route: 050

REACTIONS (19)
  - Visual acuity reduced [Unknown]
  - Cutis laxa [Unknown]
  - Retinoschisis [Unknown]
  - Overdose [Unknown]
  - Ocular toxicity [Unknown]
  - Pupillary reflex impaired [Unknown]
  - Choroidal neovascularisation [Unknown]
  - Pain [Unknown]
  - Strabismus [Unknown]
  - Retinal detachment [Unknown]
  - Vitreous floaters [Unknown]
  - Eyelid ptosis [Unknown]
  - Diabetes mellitus [Unknown]
  - Photophobia [Unknown]
  - Non-infectious endophthalmitis [Unknown]
  - Staphyloma [Unknown]
  - Aphakia [Unknown]
  - Myopia [Unknown]
  - Off label use [Unknown]

NARRATIVE: CASE EVENT DATE: 201106
